FAERS Safety Report 11749153 (Version 8)
Quarter: 2017Q2

REPORT INFORMATION
  Report Type: Spontaneous
  Country: JP (occurrence: JP)
  Receive Date: 20151118
  Receipt Date: 20170620
  Transmission Date: 20170829
  Serious: Yes (Hospitalization, Other)
  Sender: FDA-Public Use
  Company Number: JP-ROCHE-1661548

PATIENT
  Age: 56 Year
  Sex: Male
  Weight: 99 kg

DRUGS (10)
  1. CRESTOR [Concomitant]
     Active Substance: ROSUVASTATIN CALCIUM
     Indication: HYPERLIPIDAEMIA
     Route: 048
     Dates: start: 20140501, end: 20151007
  2. FLUORESCEIN [Concomitant]
     Active Substance: FLUORESCEIN
     Indication: PRODUCT USED FOR UNKNOWN INDICATION
     Dosage: UNK
     Route: 065
  3. ADALAT [Concomitant]
     Active Substance: NIFEDIPINE
     Indication: HYPERTENSION
     Route: 048
     Dates: start: 20150115
  4. INSULIN [Concomitant]
     Active Substance: INSULIN NOS
     Indication: DIABETES MELLITUS
     Route: 065
  5. TENELIA [Concomitant]
     Active Substance: TENELIGLIPTIN
     Indication: DIABETES MELLITUS
     Route: 048
     Dates: start: 20150710
  6. TRIAMCINOLONE ACETONIDE. [Concomitant]
     Active Substance: TRIAMCINOLONE ACETONIDE
     Indication: PRODUCT USED FOR UNKNOWN INDICATION
     Dosage: UNK
     Route: 065
  7. LUCENTIS [Suspect]
     Active Substance: RANIBIZUMAB
     Indication: DIABETIC RETINAL OEDEMA
     Dosage: 0.05 ML, PER ADMINISTRATION
     Route: 031
     Dates: start: 20150206
  8. MICARDIS [Concomitant]
     Active Substance: TELMISARTAN
     Indication: HYPERTENSION
     Route: 048
     Dates: start: 20140115
  9. LUCENTIS [Suspect]
     Active Substance: RANIBIZUMAB
     Dosage: 0.05 ML, PER ADMINISTRATION
     Route: 031
     Dates: start: 20150313
  10. LUCENTIS [Suspect]
     Active Substance: RANIBIZUMAB
     Dosage: 0.05 ML, PER ADMINISTRATION
     Route: 031
     Dates: start: 20150424, end: 20150424

REACTIONS (3)
  - Diabetic retinal oedema [Recovering/Resolving]
  - Therapeutic response decreased [Unknown]
  - Renal impairment [Not Recovered/Not Resolved]

NARRATIVE: CASE EVENT DATE: 20150429
